FAERS Safety Report 13254144 (Version 2)
Quarter: 2017Q2

REPORT INFORMATION
  Report Type: Spontaneous
  Country: PT (occurrence: PT)
  Receive Date: 20170221
  Receipt Date: 20170404
  Transmission Date: 20170830
  Serious: Yes (Other)
  Sender: FDA-Public Use
  Company Number: PT-BAXTER-2017BAX007020

PATIENT
  Sex: Female

DRUGS (1)
  1. BREVIBLOC [Suspect]
     Active Substance: ESMOLOL HYDROCHLORIDE
     Indication: OCCUPATIONAL EXPOSURE TO PRODUCT
     Dosage: 250 ML BAG, 1 UNIT
     Route: 065

REACTIONS (5)
  - Oropharyngeal discomfort [Unknown]
  - Dyspnoea [Unknown]
  - Cough [Unknown]
  - Occupational exposure to product [Unknown]
  - Rash generalised [Unknown]
